FAERS Safety Report 8140053-0 (Version None)
Quarter: 2012Q1

REPORT INFORMATION
  Report Type: 
  Country: None (occurrence: None)
  Receive Date: 20120215
  Receipt Date: 20120201
  Transmission Date: 20120608
  Serious: Yes (Death, Other)
  Sender: FDA-Public Use
  Company Number: SE-AMGEN-US344384

PATIENT
  Age: 65 Year
  Sex: Female

DRUGS (3)
  1. ACETAMINOPHEN [Concomitant]
     Dosage: UNK
  2. ETANERCEPT [Suspect]
     Indication: RHEUMATOID ARTHRITIS
     Dosage: 50 MG, WEEKLY
     Dates: start: 19990819
  3. METHOTREXATE [Concomitant]
     Dosage: UNK UNK, UNK

REACTIONS (3)
  - SEPSIS [None]
  - PYREXIA [None]
  - MYOCARDIAL INFARCTION [None]
